FAERS Safety Report 7927744-9 (Version None)
Quarter: 2011Q4

REPORT INFORMATION
  Report Type: 
  Country: None (occurrence: None)
  Receive Date: 20111118
  Receipt Date: 20110419
  Transmission Date: 20120403
  Serious: No
  Sender: FDA-Public Use
  Company Number: US-BRISTOL-MYERS SQUIBB COMPANY-15684038

PATIENT
  Age: 64 Year
  Sex: Female

DRUGS (10)
  1. GLUCOPHAGE XR [Suspect]
     Indication: TYPE 2 DIABETES MELLITUS
     Dosage: DOSE INCREASED FROM 2TABS TO 3TABS
     Route: 048
     Dates: start: 20090201
  2. AMITRIPTYLINE HCL [Concomitant]
  3. LIPITOR [Concomitant]
  4. PANTOPRAZOLE [Concomitant]
  5. JANUVIA [Concomitant]
  6. GABAPENTIN [Concomitant]
  7. HYOSCYAMINE [Concomitant]
  8. OXYCODONE HCL AND ACETAMINOPHEN [Concomitant]
  9. ENALAPRIL MALEATE [Concomitant]
  10. LEVEMIR [Concomitant]

REACTIONS (1)
  - DIARRHOEA [None]
